FAERS Safety Report 22172623 (Version 1)
Quarter: 2023Q2

REPORT INFORMATION
  Report Type: Spontaneous
  Country: FR (occurrence: FR)
  Receive Date: 20230404
  Receipt Date: 20230404
  Transmission Date: 20230722
  Serious: Yes (Other)
  Sender: FDA-Public Use
  Company Number: None

PATIENT
  Age: 34 Year
  Sex: Female
  Weight: 55 kg

DRUGS (1)
  1. DIPROSONE [Suspect]
     Active Substance: BETAMETHASONE DIPROPIONATE
     Indication: Eczema
     Dosage: 2 DOSAGE FORM, ONCE A YEAR
     Dates: start: 19890101, end: 20190101

REACTIONS (4)
  - Cataract [Recovering/Resolving]
  - Herpes zoster [Recovering/Resolving]
  - Renal failure [Recovering/Resolving]
  - Herpes simplex [Recovering/Resolving]
